FAERS Safety Report 24541404 (Version 1)
Quarter: 2024Q4

REPORT INFORMATION
  Report Type: Spontaneous
  Country: FR (occurrence: FR)
  Receive Date: 20241023
  Receipt Date: 20241023
  Transmission Date: 20250115
  Serious: Yes (Hospitalization)
  Sender: SAMSUNG BIOEPIS
  Company Number: None

PATIENT
  Age: 68 Year
  Sex: Female
  Weight: 109 kg

DRUGS (2)
  1. INFLIXIMAB [Suspect]
     Active Substance: INFLIXIMAB
     Indication: SAPHO syndrome
     Route: 042
     Dates: start: 202401, end: 20240502
  2. METHOTREXATE [Concomitant]
     Active Substance: METHOTREXATE
     Indication: Product used for unknown indication

REACTIONS (2)
  - Paradoxical psoriasis [Not Recovered/Not Resolved]
  - Off label use [Unknown]

NARRATIVE: CASE EVENT DATE: 20240330
